FAERS Safety Report 25604299 (Version 1)
Quarter: 2025Q3

REPORT INFORMATION
  Report Type: Spontaneous
  Country: US (occurrence: US)
  Receive Date: 20250725
  Receipt Date: 20250725
  Transmission Date: 20251021
  Serious: No
  Sender: INNOGENIX, LLC
  Company Number: US-Innogenix, LLC-2181185

PATIENT

DRUGS (1)
  1. PROPRANOLOL HYDROCHLORIDE [Suspect]
     Active Substance: PROPRANOLOL HYDROCHLORIDE
     Indication: Product used for unknown indication

REACTIONS (3)
  - Presyncope [Unknown]
  - Drug hypersensitivity [Unknown]
  - Heart rate decreased [Unknown]
